FAERS Safety Report 10174608 (Version 2)
Quarter: 2014Q2

REPORT INFORMATION
  Report Type: Spontaneous
  Country: US (occurrence: US)
  Receive Date: 20140515
  Receipt Date: 20140519
  Transmission Date: 20141212
  Serious: Yes (Disabling)
  Sender: FDA-Public Use
  Company Number: US-GLAXOSMITHKLINE-A1067770A

PATIENT
  Age: 68 Year
  Sex: Female

DRUGS (4)
  1. RYTHMOL SR [Suspect]
     Indication: ATRIAL FIBRILLATION
     Dosage: 225MG TWICE PER DAY
     Route: 048
     Dates: start: 20050101
  2. DIGOXIN [Concomitant]
  3. ENALAPRIL [Concomitant]
  4. HCTZ [Concomitant]

REACTIONS (5)
  - Radius fracture [Recovered/Resolved]
  - Fall [Recovered/Resolved]
  - Upper respiratory tract infection [Recovered/Resolved]
  - Osteopenia [Recovered/Resolved]
  - Osteoporosis [Unknown]
